FAERS Safety Report 13946254 (Version 1)
Quarter: 2017Q3

REPORT INFORMATION
  Report Type: Spontaneous
  Country: US (occurrence: US)
  Receive Date: 20170907
  Receipt Date: 20170907
  Transmission Date: 20171128
  Serious: No
  Sender: FDA-Public Use
  Company Number: US-CELGENEUS-USA-20170900575

PATIENT
  Age: 33 Year
  Sex: Female

DRUGS (1)
  1. OTEZLA [Suspect]
     Active Substance: APREMILAST
     Indication: PSORIASIS
     Dosage: 60 MILLIGRAM
     Route: 048
     Dates: start: 20170819

REACTIONS (8)
  - Nervousness [Unknown]
  - Anxiety [Unknown]
  - Nausea [Unknown]
  - Feeling abnormal [Unknown]
  - Migraine [Unknown]
  - Paranoia [Unknown]
  - Mental fatigue [Unknown]
  - Mood swings [Unknown]

NARRATIVE: CASE EVENT DATE: 201708
